FAERS Safety Report 7096224-8 (Version None)
Quarter: 2010Q4

REPORT INFORMATION
  Report Type: 
  Country: None (occurrence: None)
  Receive Date: 20101103
  Receipt Date: 20101020
  Transmission Date: 20110411
  Serious: Yes (Other)
  Sender: FDA-Public Use
  Company Number: 1000013743

PATIENT
  Age: 41 Year
  Sex: Female

DRUGS (5)
  1. ESCITALOPRAM OXALATE [Suspect]
     Indication: DEPRESSION
     Dosage: 10 MG (10 MG,1 IN 1 D),ORAL ; 15 MG (15 MG,1 IN 1 D),ORAL
     Route: 048
     Dates: start: 20070703, end: 20100713
  2. ESCITALOPRAM OXALATE [Suspect]
     Indication: PANIC DISORDER
     Dosage: 10 MG (10 MG,1 IN 1 D),ORAL ; 15 MG (15 MG,1 IN 1 D),ORAL
     Route: 048
     Dates: start: 20070703, end: 20100713
  3. ESCITALOPRAM OXALATE [Suspect]
     Indication: DEPRESSION
     Dosage: 10 MG (10 MG,1 IN 1 D),ORAL ; 15 MG (15 MG,1 IN 1 D),ORAL
     Route: 048
     Dates: start: 20100714
  4. ESCITALOPRAM OXALATE [Suspect]
     Indication: PANIC DISORDER
     Dosage: 10 MG (10 MG,1 IN 1 D),ORAL ; 15 MG (15 MG,1 IN 1 D),ORAL
     Route: 048
     Dates: start: 20100714
  5. ZOPICLON (ZOPICLONE) (TABLETS) (ZOPICLONE) [Concomitant]

REACTIONS (21)
  - ANXIETY [None]
  - BACK PAIN [None]
  - BLOOD GLUCOSE ABNORMAL [None]
  - BLOOD PRESSURE DECREASED [None]
  - DRUG INEFFECTIVE [None]
  - FATIGUE [None]
  - HOT FLUSH [None]
  - HYPERHIDROSIS [None]
  - INSOMNIA [None]
  - IRRITABILITY [None]
  - LISTLESS [None]
  - PANIC ATTACK [None]
  - PARAESTHESIA [None]
  - RESTLESSNESS [None]
  - TACHYCARDIA [None]
  - TENSION [None]
  - THINKING ABNORMAL [None]
  - TREMOR [None]
  - UTERINE LEIOMYOMA [None]
  - WEIGHT INCREASED [None]
  - YAWNING [None]
